FAERS Safety Report 5656161-X (Version None)
Quarter: 2008Q1

REPORT INFORMATION
  Report Type: 
  Country: None (occurrence: None)
  Receive Date: 20080305
  Receipt Date: 20080221
  Transmission Date: 20080703
  Serious: Yes (Life-Threatening)
  Sender: FDA-Public Use
  Company Number: 1-15809709

PATIENT
  Sex: Male
  Weight: 79.8331 kg

DRUGS (2)
  1. FENTANYL [Suspect]
     Indication: FIBROMYALGIA
     Dosage: 50 MCG/HR EVERY 72 HR, TRANSDERMAL
     Route: 062
     Dates: start: 20071101, end: 20080201
  2. LYRICA [Concomitant]

REACTIONS (9)
  - COLD SWEAT [None]
  - DRUG WITHDRAWAL SYNDROME [None]
  - IMPAIRED DRIVING ABILITY [None]
  - NAUSEA [None]
  - OVERDOSE [None]
  - PHARMACEUTICAL PRODUCT COMPLAINT [None]
  - SLEEP ATTACKS [None]
  - SOMNOLENCE [None]
  - TREMOR [None]
